FAERS Safety Report 19717671 (Version 1)
Quarter: 2021Q3

REPORT INFORMATION
  Report Type: Spontaneous
  Country: US (occurrence: US)
  Receive Date: 20210818
  Receipt Date: 20210818
  Transmission Date: 20211014
  Serious: No
  Sender: FDA-Public Use
  Company Number: US-ASTRAZENECA-2021A646971

PATIENT
  Sex: Female

DRUGS (2)
  1. BREZTRI AEROSPHERE [Suspect]
     Active Substance: BUDESONIDE\FORMOTEROL\GLYCOPYRRONIUM
     Indication: PULMONARY FIBROSIS
     Dosage: 160MCG/ 9MCG/ 4.8MCG 2 PUFFS TWO TIMES A DAY
     Route: 055
     Dates: start: 202106
  2. FUROSEMIDE. [Concomitant]
     Active Substance: FUROSEMIDE
     Route: 065

REACTIONS (2)
  - Lip dry [Not Recovered/Not Resolved]
  - Off label use [Not Recovered/Not Resolved]
